FAERS Safety Report 12511595 (Version 2)
Quarter: 2016Q3

REPORT INFORMATION
  Report Type: Spontaneous
  Country: IT (occurrence: IT)
  Receive Date: 20160630
  Receipt Date: 20160701
  Transmission Date: 20161109
  Serious: Yes (Hospitalization)
  Sender: FDA-Public Use
  Company Number: IT-ASTRAZENECA-2016SE70736

PATIENT
  Age: 34633 Day
  Sex: Female

DRUGS (8)
  1. FUROSEMIDE. [Concomitant]
     Active Substance: FUROSEMIDE
  2. TIKLID [Concomitant]
     Active Substance: TICLOPIDINE HYDROCHLORIDE
  3. SEROQUEL [Suspect]
     Active Substance: QUETIAPINE FUMARATE
     Route: 048
     Dates: start: 20160418, end: 20160420
  4. TALOFEN [Suspect]
     Active Substance: PROMAZINE HYDROCHLORIDE
     Route: 065
     Dates: start: 20160418, end: 20160420
  5. TAVOR (LORAZEPAM) [Suspect]
     Active Substance: LORAZEPAM
     Route: 065
     Dates: start: 20160418, end: 20160420
  6. LUVION [Concomitant]
     Active Substance: CANRENONE
  7. LOSARTAN. [Concomitant]
     Active Substance: LOSARTAN
  8. DEPAKIN [Suspect]
     Active Substance: VALPROATE SODIUM
     Route: 065
     Dates: start: 20160418, end: 20160420

REACTIONS (1)
  - Sopor [Unknown]

NARRATIVE: CASE EVENT DATE: 20160420
